FAERS Safety Report 7989653-9 (Version None)
Quarter: 2011Q4

REPORT INFORMATION
  Report Type: 
  Country: None (occurrence: None)
  Receive Date: 20111215
  Receipt Date: 20111129
  Transmission Date: 20120403
  Serious: Yes (Hospitalization)
  Sender: FDA-Public Use
  Company Number: 2011ST000463

PATIENT
  Age: 23 Year
  Sex: Female

DRUGS (1)
  1. MATULANE [Suspect]
     Indication: LYMPHOMA
     Dosage: 200 MG; QD; PO
     Route: 048
     Dates: start: 20111011

REACTIONS (1)
  - HOSPITALISATION [None]
